FAERS Safety Report 13170377 (Version 1)
Quarter: 2017Q1

REPORT INFORMATION
  Report Type: Spontaneous
  Country: US (occurrence: US)
  Receive Date: 20170131
  Receipt Date: 20170131
  Transmission Date: 20170428
  Serious: Yes (Other)
  Sender: FDA-Public Use
  Company Number: US-THE MENTHOLATUM COMPANY-1062594

PATIENT
  Age: 35 Year
  Sex: Female
  Weight: 85.91 kg

DRUGS (1)
  1. RED CROSS TOOTHACHE [Suspect]
     Active Substance: EUGENOL
     Indication: TOOTHACHE
     Route: 061
     Dates: start: 20170116, end: 20170116

REACTIONS (4)
  - Oral discomfort [Recovering/Resolving]
  - Tongue discomfort [Recovering/Resolving]
  - Cheilitis [None]
  - Glossodynia [None]

NARRATIVE: CASE EVENT DATE: 20170116
